FAERS Safety Report 7323095-4 (Version None)
Quarter: 2011Q1

REPORT INFORMATION
  Report Type: 
  Country: None (occurrence: None)
  Receive Date: 20110301
  Receipt Date: 20110221
  Transmission Date: 20110831
  Serious: Yes (Hospitalization)
  Sender: FDA-Public Use
  Company Number: JP-NOVOPROD-323770

PATIENT
  Age: 76 Year
  Sex: Male

DRUGS (4)
  1. ARGAMATE [Concomitant]
     Dosage: 10 G, QD
     Route: 048
  2. VICTOZA [Suspect]
     Indication: DIABETES MELLITUS
     Dosage: 0.9 MG, QD
     Route: 058
     Dates: start: 20100907
  3. KINEDAK [Concomitant]
     Dosage: 150 MG QD
     Route: 048
  4. AMARYL [Concomitant]
     Dosage: 1 MG, QD
     Route: 048

REACTIONS (3)
  - DYSPNOEA [None]
  - PHARYNGEAL STENOSIS [None]
  - PARALYSIS [None]
